FAERS Safety Report 7549272-5 (Version None)
Quarter: 2011Q2

REPORT INFORMATION
  Report Type: 
  Country: None (occurrence: None)
  Receive Date: 20110615
  Receipt Date: 20110615
  Transmission Date: 20111010
  Serious: Yes (Hospitalization)
  Sender: FDA-Public Use
  Company Number: PHHO1999FR02069

PATIENT
  Sex: Female
  Weight: 82 kg

DRUGS (15)
  1. IRON (IRON) [Concomitant]
  2. FUNGIZONE [Concomitant]
  3. DUPHALAC [Concomitant]
  4. AMLODIPINE BESYLATE [Concomitant]
  5. BACTRIM [Concomitant]
  6. EPREX [Concomitant]
  7. RANITIDINE HYDROCHLORIDE [Concomitant]
  8. DOPAMINE HCL [Concomitant]
  9. NEORAL [Concomitant]
  10. AUGMENTIN '125' [Concomitant]
  11. CORTANCYL (PREDNISONE) [Concomitant]
  12. OMEPRAZOLE [Concomitant]
  13. BASILIXIMAB [Suspect]
     Dosage: 20 MG, UNK
     Route: 042
     Dates: start: 19980818
  14. ZOVIRAX [Concomitant]
  15. AZATHIOPRINE [Concomitant]

REACTIONS (1)
  - CYTOMEGALOVIRUS INFECTION [None]
